FAERS Safety Report 15665078 (Version 1)
Quarter: 2018Q4

REPORT INFORMATION
  Report Type: Spontaneous
  Country: FR (occurrence: FR)
  Receive Date: 20181128
  Receipt Date: 20181128
  Transmission Date: 20190205
  Serious: Yes (Other)
  Sender: FDA-Public Use
  Company Number: FR-PROVELL PHARMACEUTICALS-2059344

PATIENT
  Age: 61 Year
  Sex: Female
  Weight: 70 kg

DRUGS (1)
  1. EUTHYROX [Suspect]
     Active Substance: LEVOTHYROXINE SODIUM
     Indication: THYROIDECTOMY
     Route: 048
     Dates: start: 20170405, end: 20171105

REACTIONS (16)
  - Malaise [Recovered/Resolved]
  - Muscle spasms [Recovered/Resolved]
  - Product formulation issue [Recovered/Resolved]
  - Abnormal behaviour [Recovered/Resolved]
  - Loss of libido [Recovered/Resolved]
  - Weight increased [Not Recovered/Not Resolved]
  - Diarrhoea [Recovered/Resolved]
  - Vertigo [Recovered/Resolved]
  - Alopecia [Not Recovered/Not Resolved]
  - Vision blurred [Recovered/Resolved]
  - Hyperhidrosis [Recovered/Resolved]
  - Tremor [Recovered/Resolved]
  - Blood thyroid stimulating hormone increased [Recovered/Resolved]
  - Amnesia [Recovering/Resolving]
  - Fatigue [Recovered/Resolved]
  - Depression [Recovered/Resolved]

NARRATIVE: CASE EVENT DATE: 201704
